FAERS Safety Report 9410146 (Version 2)
Quarter: 2014Q2

REPORT INFORMATION
  Report Type: Report from Study
  Country: NL (occurrence: NL)
  Receive Date: 20130719
  Receipt Date: 20140401
  Transmission Date: 20141212
  Serious: Yes (Hospitalization)
  Sender: FDA-Public Use
  Company Number: NL-ACTELION-A-CH2013-85828

PATIENT
  Age: 41 Year
  Sex: Female
  Weight: 79 kg

DRUGS (16)
  1. TRACLEER [Suspect]
     Indication: SKIN ULCER
     Dosage: 125 MG, BID
     Route: 048
  2. OXYCONTIN [Concomitant]
  3. CALCICHEW [Concomitant]
  4. PANTOZOL [Concomitant]
  5. LISINOPRIL [Concomitant]
  6. TREPROSTINIL [Concomitant]
  7. SILDENAFIL [Concomitant]
  8. PCM [Concomitant]
  9. OXYNORM [Concomitant]
  10. ADALAT [Concomitant]
  11. METOCLOPRAMIDE [Concomitant]
  12. KETANSERIN [Concomitant]
  13. HYDROXYZINE [Concomitant]
  14. ACETYLSALICYLZUUR [Concomitant]
  15. FLOLAN [Concomitant]
     Indication: SKIN ULCER
  16. FLOLAN [Concomitant]
     Indication: PULMONARY ARTERIAL HYPERTENSION

REACTIONS (6)
  - Electrolyte imbalance [Unknown]
  - Cardiac failure [Unknown]
  - Liver function test abnormal [Recovered/Resolved]
  - Aspartate aminotransferase increased [Recovered/Resolved]
  - Alanine aminotransferase increased [Recovered/Resolved]
  - Blood alkaline phosphatase increased [Recovered/Resolved]
